FAERS Safety Report 16203963 (Version 3)
Quarter: 2019Q3

REPORT INFORMATION
  Report Type: Other
  Country: CA (occurrence: CA)
  Receive Date: 20190416
  Receipt Date: 20190726
  Transmission Date: 20191004
  Serious: Yes (Hospitalization, Other)
  Sender: FDA-Public Use
  Company Number: CA-TITAN PHARMACEUTICALS-2019TAN00017

PATIENT
  Age: 2 Day
  Sex: Male

DRUGS (9)
  1. BUPRENORPHINE. [Suspect]
     Active Substance: BUPRENORPHINE
     Dosage: UNK
     Route: 064
  2. BUPRENORPHINE HYDROBROMIDE [Suspect]
     Active Substance: BUPRENORPHINE
  3. NICOTINE. [Suspect]
     Active Substance: NICOTINE
     Dosage: UNK
     Route: 064
  4. BIOTIN / D-ALPHA TOCOPHEROL / FOLIC ACID / MINERALS NOS / NICOTINIC AC [DIETARY SUPPLEMENT] [Suspect]
     Active Substance: DIETARY SUPPLEMENT
  5. BUPRENORPHINE HYDROCHLORIDE. [Suspect]
     Active Substance: BUPRENORPHINE HYDROCHLORIDE
     Dosage: UNK
     Route: 064
  6. NICOTINE. [Suspect]
     Active Substance: NICOTINE
     Dosage: 15 DOSAGE UNITS, 1X/DAY
     Route: 064
  7. ONDANSETRON HYDROCHLORIDE. [Suspect]
     Active Substance: ONDANSETRON HYDROCHLORIDE
     Dosage: UNK
     Route: 064
  8. BUPRENORPHINE HYDROCHLORIDE. [Suspect]
     Active Substance: BUPRENORPHINE HYDROCHLORIDE
     Dosage: 12 DOSAGE UNITS, 1X/DAY
     Route: 063
  9. TRAZODONE [Suspect]
     Active Substance: TRAZODONE HYDROCHLORIDE
     Dosage: UNK
     Route: 064

REACTIONS (4)
  - Drug withdrawal syndrome neonatal [Recovered/Resolved]
  - Exposure via breast milk [Recovered/Resolved]
  - Foetal exposure during pregnancy [Recovered/Resolved]
  - Poor feeding infant [Recovered/Resolved]
